FAERS Safety Report 5742963-8 (Version None)
Quarter: 2008Q2

REPORT INFORMATION
  Report Type: 
  Country: None (occurrence: None)
  Receive Date: 20080515
  Receipt Date: 20080515
  Transmission Date: 20081010
  Serious: No
  Sender: FDA-Public Use
  Company Number: None

PATIENT
  Age: 51 Year
  Sex: Female
  Weight: 48.9885 kg

DRUGS (1)
  1. CIPROFLOXACIN [Suspect]
     Indication: DIVERTICULITIS
     Dosage: 1 TAB 2X'S/DAY PO
     Route: 048
     Dates: start: 20080402, end: 20080412

REACTIONS (4)
  - ILL-DEFINED DISORDER [None]
  - PAIN [None]
  - PAIN IN EXTREMITY [None]
  - TENDON DISORDER [None]
